FAERS Safety Report 5923321-X (Version None)
Quarter: 2008Q4

REPORT INFORMATION
  Report Type: 
  Country: None (occurrence: None)
  Receive Date: 20081020
  Receipt Date: 20081010
  Transmission Date: 20090506
  Serious: Yes (Hospitalization)
  Sender: FDA-Public Use
  Company Number: FR-NOVOPROD-280329

PATIENT
  Sex: Female
  Weight: 73.3 kg

DRUGS (4)
  1. INSULIN DETEMIR PENFILL [Suspect]
     Indication: TYPE 1 DIABETES MELLITUS
     Dosage: 24 IU, QD
     Route: 058
     Dates: start: 20080407
  2. INSULIN DETEMIR PENFILL [Suspect]
     Dosage: 12 IU, QD
     Route: 058
     Dates: start: 20081010
  3. NOVORAPID PENFILL 3.0 ML [Suspect]
     Indication: TYPE 1 DIABETES MELLITUS
     Dosage: 56 IU, QD
     Route: 058
     Dates: start: 20080407
  4. TROPICAMIDE [Concomitant]
     Dosage: 2 MG, QD
     Route: 048

REACTIONS (1)
  - CYTOLYTIC HEPATITIS [None]
